FAERS Safety Report 7395526-5 (Version None)
Quarter: 2011Q2

REPORT INFORMATION
  Report Type: 
  Country: None (occurrence: None)
  Receive Date: 20110405
  Receipt Date: 20080506
  Transmission Date: 20111010
  Serious: No
  Sender: FDA-Public Use
  Company Number: US-BAXTER-2008BH004501

PATIENT
  Age: 52 Year
  Sex: Female
  Weight: 72 kg

DRUGS (2)
  1. HEPARIN SODIUM INJECTION [Suspect]
     Indication: STENT PLACEMENT
     Route: 065
     Dates: start: 20070606, end: 20070610
  2. HEPARIN SODIUM 5,000 UNITS IN DEXTROSE 5% [Suspect]
     Indication: STENT PLACEMENT
     Route: 065
     Dates: start: 20070606, end: 20070610

REACTIONS (14)
  - PAIN [None]
  - HYPERHIDROSIS [None]
  - BURNING SENSATION [None]
  - SENSORY DISTURBANCE [None]
  - PARAESTHESIA [None]
  - THIRST [None]
  - URINARY TRACT INFECTION [None]
  - HEADACHE [None]
  - LACRIMATION INCREASED [None]
  - PALLOR [None]
  - HEART RATE INCREASED [None]
  - FLUSHING [None]
  - DYSPNOEA [None]
  - ABDOMINAL PAIN UPPER [None]
